FAERS Safety Report 8075182-3 (Version None)
Quarter: 2012Q1

REPORT INFORMATION
  Report Type: 
  Country: None (occurrence: None)
  Receive Date: 20120127
  Receipt Date: 20120123
  Transmission Date: 20120608
  Serious: No
  Sender: FDA-Public Use
  Company Number: US-PFIZER INC-2012018468

PATIENT
  Sex: Male
  Weight: 97.506 kg

DRUGS (2)
  1. HYDROCHLOROTHIAZIDE [Concomitant]
     Dosage: UNK
  2. TIKOSYN [Suspect]
     Indication: ATRIAL FIBRILLATION
     Dosage: UNK
     Dates: start: 20110101

REACTIONS (2)
  - HEADACHE [None]
  - ATRIAL FIBRILLATION [None]
